FAERS Safety Report 7034898-8 (Version None)
Quarter: 2010Q4

REPORT INFORMATION
  Report Type: 
  Country: None (occurrence: None)
  Receive Date: 20101008
  Receipt Date: 20101001
  Transmission Date: 20110411
  Serious: Yes (Hospitalization, Other)
  Sender: FDA-Public Use
  Company Number: US-PFIZER INC-2010098043

PATIENT
  Age: 59 Year
  Sex: Female
  Weight: 97.506 kg

DRUGS (1)
  1. CHANTIX [Suspect]
     Indication: SMOKING CESSATION THERAPY
     Dosage: 1 MG, 2X/DAY
     Route: 048
     Dates: start: 20081011, end: 20090214

REACTIONS (3)
  - ANXIETY [None]
  - CHEST PAIN [None]
  - INSOMNIA [None]
